FAERS Safety Report 8960223 (Version 1)
Quarter: 2012Q4

REPORT INFORMATION
  Report Type: 
  Country: NL (occurrence: NL)
  Receive Date: 20121212
  Receipt Date: 20121212
  Transmission Date: 20130627
  Serious: Yes (Hospitalization)
  Sender: FDA-Public Use
  Company Number: NL-PFIZER INC-2012308454

PATIENT
  Age: 77 Year
  Sex: Male
  Weight: 69 kg

DRUGS (8)
  1. GENOTROPIN [Suspect]
     Dosage: 0.7 mg, 1x/day,7 injections/week
     Route: 058
     Dates: start: 20030424
  2. ISOSORBIDE DINITRATE [Concomitant]
     Indication: CONDUCTION DISORDER
     Dosage: UNK
     Dates: start: 19860115
  3. METOPROLOL [Concomitant]
     Indication: CORONARY HEART DISEASE
     Dosage: UNK
     Dates: start: 19860615
  4. LEVOTHYROXINE [Concomitant]
     Indication: TSH DECREASED
     Dosage: UNK
     Dates: start: 19950115
  5. LEVOTHYROXINE [Concomitant]
     Indication: PRIMARY HYPOTHYROIDISM
  6. CORTISONE ACETATE [Concomitant]
     Indication: ACTH DECREASED
     Dosage: UNK
     Dates: start: 19960215
  7. DILTIAZEM [Concomitant]
     Indication: CORONARY HEART DISEASE
     Dosage: UNK
     Dates: start: 19970604
  8. ATORVASTATIN [Concomitant]
     Indication: CORONARY HEART DISEASE
     Dosage: UNK
     Dates: start: 20040314

REACTIONS (1)
  - Viral infection [Unknown]
